FAERS Safety Report 4387330-7 (Version None)
Quarter: 2004Q2

REPORT INFORMATION
  Report Type: 
  Country: None (occurrence: None)
  Receive Date: 20040630
  Receipt Date: 20040413
  Transmission Date: 20050107
  Serious: No
  Sender: FDA-Public Use
  Company Number: US-GLAXOSMITHKLINE-A0506807A

PATIENT

DRUGS (3)
  1. ADVAIR HFA [Suspect]
     Indication: ASTHMA
     Route: 055
  2. ALBUTEROL [Suspect]
     Indication: ASTHMA
  3. STEROIDS [Concomitant]
     Indication: ASTHMA

REACTIONS (4)
  - DRUG INEFFECTIVE [None]
  - HAEMATEMESIS [None]
  - JOINT SWELLING [None]
  - OEDEMA PERIPHERAL [None]
